FAERS Safety Report 8011244-4 (Version None)
Quarter: 2011Q4

REPORT INFORMATION
  Report Type: 
  Country: None (occurrence: None)
  Receive Date: 20111227
  Receipt Date: 20111227
  Transmission Date: 20120403
  Serious: No
  Sender: FDA-Public Use
  Company Number: None

PATIENT
  Age: 19 Year
  Sex: Male
  Weight: 90.718 kg

DRUGS (1)
  1. LARIAM [Suspect]
     Indication: MALARIA PROPHYLAXIS
     Route: 048
     Dates: start: 20030310, end: 20040318

REACTIONS (6)
  - BIPOLAR DISORDER [None]
  - INSOMNIA [None]
  - MOOD SWINGS [None]
  - NIGHTMARE [None]
  - MALAISE [None]
  - ANGER [None]
